FAERS Safety Report 25745537 (Version 1)
Quarter: 2025Q3

REPORT INFORMATION
  Report Type: Spontaneous
  Country: US (occurrence: US)
  Receive Date: 20250901
  Receipt Date: 20250901
  Transmission Date: 20251020
  Serious: Yes (Other)
  Sender: ABBVIE
  Company Number: US-ABBVIE-6435975

PATIENT
  Age: 73 Year
  Sex: Female

DRUGS (2)
  1. SYNTHROID [Suspect]
     Active Substance: LEVOTHYROXINE SODIUM
     Indication: Hypothyroidism
     Route: 048
  2. SYNTHROID [Suspect]
     Active Substance: LEVOTHYROXINE SODIUM
     Indication: Hypothyroidism
     Route: 048
     Dates: start: 2024

REACTIONS (8)
  - Systemic lupus erythematosus [Unknown]
  - Drug resistance [Unknown]
  - Abdominal distension [Unknown]
  - Abdominal distension [Unknown]
  - Fluid retention [Unknown]
  - Off label use [Unknown]
  - Hypertension [Unknown]
  - Housebound [Unknown]

NARRATIVE: CASE EVENT DATE: 20250101
